FAERS Safety Report 7930276-5 (Version None)
Quarter: 2011Q4

REPORT INFORMATION
  Report Type: 
  Country: None (occurrence: None)
  Receive Date: 20111118
  Receipt Date: 20111118
  Transmission Date: 20120403
  Serious: Yes (Death)
  Sender: FDA-Public Use
  Company Number: None

PATIENT
  Age: 72 Year
  Sex: Male
  Weight: 120.1 kg

DRUGS (23)
  1. SIMVASTATIN [Concomitant]
  2. DOXYCYCLINE [Concomitant]
  3. CORTISONE CREAM [Concomitant]
  4. SORAFENIB [Suspect]
     Indication: HEPATIC NEOPLASM MALIGNANT
     Dosage: 400MG PO BID
     Route: 048
     Dates: start: 20111029, end: 20111110
  5. FUROSEMIDE [Concomitant]
  6. LOVENOX [Concomitant]
  7. BEVACIZUMAB [Suspect]
     Indication: HEPATIC NEOPLASM MALIGNANT
     Dosage: 10MG/KG
     Dates: start: 20110624, end: 20111013
  8. ERLOTINIB HYDROCHLORIDE [Suspect]
     Indication: HEPATIC NEOPLASM MALIGNANT
     Dosage: 150MG
     Dates: start: 20110624, end: 20111013
  9. ISOSORBIDE MONONITRATE [Concomitant]
  10. PIOGLITAZONE [Concomitant]
  11. ASPIRIN [Concomitant]
  12. MULTI-VITAMIN [Concomitant]
  13. TEMAZEPAM [Concomitant]
  14. NYSTATIN [Concomitant]
  15. ALPRAZOLAM [Concomitant]
  16. FAMOTIDINE [Concomitant]
  17. FERROUS SULFATE TAB [Concomitant]
  18. HYDROXYZINE [Concomitant]
  19. KLONOPIN [Concomitant]
  20. LEVOTHYROXINE SODIUM [Concomitant]
  21. METOLAZONE [Concomitant]
  22. METOPROLOL TARTRATE [Concomitant]
  23. LORTISONE [Concomitant]

REACTIONS (3)
  - NEOPLASM PROGRESSION [None]
  - CARDIAC ARREST [None]
  - NEOPLASM MALIGNANT [None]
